FAERS Safety Report 6165309-2 (Version None)
Quarter: 2009Q2

REPORT INFORMATION
  Report Type: 
  Country: None (occurrence: None)
  Receive Date: 20090421
  Receipt Date: 20090421
  Transmission Date: 20091009
  Serious: Yes (Hospitalization)
  Sender: FDA-Public Use
  Company Number: None

PATIENT
  Age: 11 Year
  Sex: Female
  Weight: 37 kg

DRUGS (1)
  1. CLINDAMYCIN HCL [Suspect]
     Indication: OSTEOMYELITIS
     Dosage: 430 MG EVERY 8 HOURS IV DRIP
     Route: 041
     Dates: start: 20090416, end: 20090420

REACTIONS (3)
  - DRUG ERUPTION [None]
  - NO THERAPEUTIC RESPONSE [None]
  - RASH MORBILLIFORM [None]
